FAERS Safety Report 21477140 (Version 1)
Quarter: 2022Q4

REPORT INFORMATION
  Report Type: Report from Study
  Country: US (occurrence: US)
  Receive Date: 20221019
  Receipt Date: 20221019
  Transmission Date: 20230112
  Serious: No
  Sender: FDA-Public Use
  Company Number: US-ABBVIE-4146442

PATIENT
  Age: 82 Year
  Sex: Female

DRUGS (2)
  1. IMBRUVICA [Suspect]
     Active Substance: IBRUTINIB
     Indication: Chronic lymphocytic leukaemia
     Route: 048
  2. WARFARIN [Concomitant]
     Active Substance: WARFARIN
     Indication: Product used for unknown indication

REACTIONS (3)
  - Transient ischaemic attack [Recovered/Resolved]
  - Onychoclasis [Not Recovered/Not Resolved]
  - Neck pain [Recovered/Resolved]

NARRATIVE: CASE EVENT DATE: 20220830
